FAERS Safety Report 15494078 (Version 1)
Quarter: 2018Q4

REPORT INFORMATION
  Report Type: Spontaneous
  Country: US (occurrence: US)
  Receive Date: 20181005
  Receipt Date: 20181005
  Transmission Date: 20190205
  Serious: No
  Sender: FDA-Public Use
  Company Number: None

PATIENT
  Age: 63 Year
  Sex: Male

DRUGS (2)
  1. ULORIC [Suspect]
     Active Substance: FEBUXOSTAT
     Indication: RHEUMATOID ARTHRITIS
  2. ULORIC [Suspect]
     Active Substance: FEBUXOSTAT
     Indication: RHEUMATOID ARTHRITIS
     Route: 048
     Dates: start: 201406

REACTIONS (1)
  - Infection [None]
